FAERS Safety Report 4721520-6 (Version None)
Quarter: 2005Q3

REPORT INFORMATION
  Report Type: 
  Country: None (occurrence: None)
  Receive Date: 20050721
  Receipt Date: 20041102
  Transmission Date: 20060218
  Serious: No
  Sender: FDA-Public Use
  Company Number: US-BRISTOL-MYERS SQUIBB COMPANY-12753166

PATIENT
  Age: 56 Year
  Sex: Female
  Weight: 93 kg

DRUGS (10)
  1. COUMADIN [Suspect]
     Indication: ATRIAL FIBRILLATION
     Dosage: VARYING DOSES-LAST WEEK 20MG 4XWEEKLY + 16MG 3XWEEKLY, NOW 25MG 2XWEEKLY + 20MG 5XWK
     Route: 048
     Dates: start: 20031003
  2. FIORINAL [Concomitant]
  3. COREG [Concomitant]
  4. DIOVAN [Concomitant]
  5. FUROSEMIDE [Concomitant]
  6. HYDRALAZINE HCL [Concomitant]
  7. LIPITOR [Concomitant]
  8. POTASSIUM CHLORIDE [Concomitant]
  9. SPIRONOLACTONE [Concomitant]
  10. VERAPAMIL HCL [Concomitant]

REACTIONS (1)
  - INTERNATIONAL NORMALISED RATIO ABNORMAL [None]
